FAERS Safety Report 15626671 (Version 3)
Quarter: 2019Q1

REPORT INFORMATION
  Report Type: Spontaneous
  Country: US (occurrence: US)
  Receive Date: 20181116
  Receipt Date: 20190320
  Transmission Date: 20190417
  Serious: Yes (Hospitalization)
  Sender: FDA-Public Use
  Company Number: US-PFIZER INC-2018465503

PATIENT
  Age: 71 Year
  Sex: Female
  Weight: 99.79 kg

DRUGS (3)
  1. LYRICA [Suspect]
     Active Substance: PREGABALIN
     Indication: BACK PAIN
     Dosage: 50 MG, 1X/DAY (AT NIGHT)
     Route: 048
  2. LYRICA [Suspect]
     Active Substance: PREGABALIN
     Indication: PAIN
     Dosage: 1 DF, UNK
  3. LYRICA [Suspect]
     Active Substance: PREGABALIN
     Indication: NEURALGIA
     Dosage: 50 MG, UNK

REACTIONS (8)
  - Arthritis [Unknown]
  - Joint swelling [Not Recovered/Not Resolved]
  - Feeling abnormal [Recovered/Resolved]
  - Peripheral swelling [Unknown]
  - Gait disturbance [Unknown]
  - Somnolence [Recovered/Resolved]
  - Pain in extremity [Unknown]
  - Movement disorder [Unknown]
